FAERS Safety Report 22318862 (Version 3)
Quarter: 2023Q2

REPORT INFORMATION
  Report Type: Spontaneous
  Country: NO (occurrence: NO)
  Receive Date: 20230515
  Receipt Date: 20230526
  Transmission Date: 20230722
  Serious: Yes (Disabling, Other)
  Sender: FDA-Public Use
  Company Number: NO-MYLANLABS-2023M1047936

PATIENT
  Age: 34 Year
  Sex: Male

DRUGS (24)
  1. ALPRAZOLAM [Suspect]
     Active Substance: ALPRAZOLAM
     Indication: Schizophrenia
     Dosage: UNK
     Route: 065
     Dates: start: 20110101
  2. ALPRAZOLAM [Suspect]
     Active Substance: ALPRAZOLAM
     Indication: Personality disorder
  3. XANAX [Suspect]
     Active Substance: ALPRAZOLAM
     Indication: Schizophrenia
     Dosage: UNK
     Route: 065
     Dates: start: 20110101, end: 20181231
  4. XANAX [Suspect]
     Active Substance: ALPRAZOLAM
     Indication: Personality disorder
  5. XANAX [Suspect]
     Active Substance: ALPRAZOLAM
     Indication: Anxiety
  6. OXAZEPAM [Suspect]
     Active Substance: OXAZEPAM
     Indication: Schizophrenia
     Dosage: UNK
     Route: 065
     Dates: start: 20110101, end: 20181231
  7. OXAZEPAM [Suspect]
     Active Substance: OXAZEPAM
     Indication: Personality disorder
  8. OXAZEPAM [Suspect]
     Active Substance: OXAZEPAM
     Indication: Anxiety
  9. CHLORPROTHIXENE [Concomitant]
     Active Substance: CHLORPROTHIXENE
     Indication: Product used for unknown indication
     Dosage: 225 MILLIGRAM, QD (75 MG, 3X/DAY)
     Route: 065
  10. ZELDOX [Concomitant]
     Active Substance: ZIPRASIDONE
     Dosage: UNK
     Route: 065
  11. ABILIFY [Concomitant]
     Active Substance: ARIPIPRAZOLE
     Dosage: UNK
     Route: 065
  12. ZOLOFT [Concomitant]
     Active Substance: SERTRALINE HYDROCHLORIDE
     Indication: Depression
     Dosage: 25 MILLIGRAM (AND INCREASING DOSE)
     Route: 065
  13. ZOLOFT [Concomitant]
     Active Substance: SERTRALINE HYDROCHLORIDE
     Indication: Post-traumatic stress disorder
  14. ZOLOFT [Concomitant]
     Active Substance: SERTRALINE HYDROCHLORIDE
     Indication: Social anxiety disorder
  15. WELLBUTRIN [Concomitant]
     Active Substance: BUPROPION HYDROCHLORIDE
     Dosage: UNK
     Route: 065
  16. TRIMEPRAZINE [Concomitant]
     Active Substance: TRIMEPRAZINE
     Dosage: UNK
     Route: 065
  17. IMOVANE [Concomitant]
     Active Substance: ZOPICLONE
     Dosage: UNK
     Route: 065
  18. ZYPREXA [Concomitant]
     Active Substance: OLANZAPINE
     Indication: Schizophrenia
     Dosage: 5 MILLIGRAM
     Route: 065
  19. RITALIN [Concomitant]
     Active Substance: METHYLPHENIDATE HYDROCHLORIDE
     Indication: Hyperkinesia
     Dosage: 0.5 MILLIGRAM, QD (1X/DAY)
     Route: 065
  20. RITALIN [Concomitant]
     Active Substance: METHYLPHENIDATE HYDROCHLORIDE
     Dosage: 2 MILLIGRAM, QD (1X/DAY)
     Route: 065
  21. BUSPIRONE [Concomitant]
     Active Substance: BUSPIRONE HYDROCHLORIDE
     Dosage: UNK
     Route: 065
  22. ATARAX [Concomitant]
     Active Substance: HYDROXYZINE HYDROCHLORIDE
     Dosage: UNK
     Route: 065
  23. SEROQUEL [Concomitant]
     Active Substance: QUETIAPINE FUMARATE
     Dosage: UNK
     Route: 065
  24. MIANSERIN [Concomitant]
     Active Substance: MIANSERIN
     Dosage: UNK
     Route: 065

REACTIONS (26)
  - Substance dependence [Unknown]
  - Conversion disorder [Unknown]
  - Alcoholism [Unknown]
  - Dystonia [Unknown]
  - Drug dependence [Unknown]
  - Pain [Unknown]
  - Abdominal discomfort [Unknown]
  - Disturbance in attention [Unknown]
  - Neurological examination abnormal [Unknown]
  - Arthralgia [Unknown]
  - Muscle tightness [Unknown]
  - Skin infection [Unknown]
  - Muscular weakness [Unknown]
  - Balance disorder [Unknown]
  - Tremor [Unknown]
  - Insomnia [Unknown]
  - Weight decreased [Unknown]
  - Weight increased [Unknown]
  - Psychotic disorder [Unknown]
  - Paraesthesia [Unknown]
  - Alcohol abuse [Unknown]
  - Muscle spasms [Unknown]
  - Hyperkinesia [Unknown]
  - Asthenia [Unknown]
  - Therapy interrupted [Unknown]
  - Off label use [Unknown]

NARRATIVE: CASE EVENT DATE: 20120101
